FAERS Safety Report 7457710-1 (Version None)
Quarter: 2011Q2

REPORT INFORMATION
  Report Type: 
  Country: None (occurrence: None)
  Receive Date: 20110504
  Receipt Date: 20110426
  Transmission Date: 20111010
  Serious: Yes (Hospitalization)
  Sender: FDA-Public Use
  Company Number: DE-ROCHE-769332

PATIENT
  Sex: Female
  Weight: 80 kg

DRUGS (2)
  1. RIBAVIRIN [Suspect]
     Route: 048
     Dates: start: 20100717
  2. PEGINTERFERON ALFA-2A [Suspect]
     Route: 058
     Dates: start: 20100716

REACTIONS (1)
  - MYCOSIS FUNGOIDES [None]
